FAERS Safety Report 8370644-3 (Version None)
Quarter: 2012Q2

REPORT INFORMATION
  Report Type: 
  Country: None (occurrence: None)
  Receive Date: 20120518
  Receipt Date: 20120509
  Transmission Date: 20120825
  Serious: Yes (Hospitalization, Other)
  Sender: FDA-Public Use
  Company Number: US-US-EMD SERONO, INC.-7132046

PATIENT
  Sex: Female

DRUGS (6)
  1. REBIF [Suspect]
     Route: 058
     Dates: start: 20120409
  2. REBIF [Suspect]
     Indication: MULTIPLE SCLEROSIS
     Route: 058
     Dates: start: 20110101, end: 20120101
  3. KLONOPIN [Concomitant]
     Indication: MUSCLE SPASTICITY
  4. ZOLOFT [Concomitant]
     Indication: DEPRESSION
  5. PROVIGIL [Concomitant]
     Indication: FATIGUE
  6. NAMENDA [Concomitant]
     Indication: EYE MOVEMENT DISORDER

REACTIONS (6)
  - NEPHROLITHIASIS [None]
  - URINARY TRACT INFECTION [None]
  - INJECTION SITE PAIN [None]
  - ABSCESS LIMB [None]
  - STAPHYLOCOCCAL SEPSIS [None]
  - INJECTION SITE ERYTHEMA [None]
